FAERS Safety Report 4659147-7 (Version None)
Quarter: 2005Q2

REPORT INFORMATION
  Report Type: 
  Country: None (occurrence: None)
  Receive Date: 20050509
  Receipt Date: 20050426
  Transmission Date: 20051028
  Serious: Yes (Hospitalization)
  Sender: FDA-Public Use
  Company Number: 2005041875

PATIENT
  Age: 39 Year
  Sex: Male

DRUGS (1)
  1. DILANTIN [Suspect]
     Indication: EPILEPSY
     Dosage: 60 MG (30 MG, 2 IN 1 D), ORAL
     Route: 048

REACTIONS (4)
  - ANTICONVULSANT DRUG LEVEL DECREASED [None]
  - DRUG THERAPY CHANGED [None]
  - EPILEPSY [None]
  - POOR QUALITY DRUG ADMINISTERED [None]
